FAERS Safety Report 9844070 (Version 2)
Quarter: 2014Q1

REPORT INFORMATION
  Report Type: Spontaneous
  Country: DE (occurrence: DE)
  Receive Date: 20140127
  Receipt Date: 20140212
  Transmission Date: 20141002
  Serious: Yes (Life-Threatening)
  Sender: FDA-Public Use
  Company Number: DE-ROCHE-1335429

PATIENT
  Age: 53 Year
  Sex: Male
  Weight: 95 kg

DRUGS (15)
  1. RITUXIMAB [Suspect]
     Indication: ANTIPHOSPHOLIPID SYNDROME
     Route: 042
     Dates: start: 20131122, end: 20131217
  2. ASS [Concomitant]
  3. PANTOZOL (GERMANY) [Concomitant]
  4. SIMVASTATIN [Concomitant]
  5. PREDNISOLON [Concomitant]
  6. QUENSYL [Concomitant]
  7. QUENSYL [Concomitant]
  8. ERGENYL [Concomitant]
  9. AMLODIPIN [Concomitant]
  10. BELOC-ZOK MITE [Concomitant]
  11. DELIX (GERMANY) [Concomitant]
  12. CLEXANE [Concomitant]
  13. ERYPO [Concomitant]
  14. DEKRISTOL [Concomitant]
  15. LASIX [Concomitant]

REACTIONS (2)
  - Pulmonary oedema [Recovering/Resolving]
  - Off label use [Unknown]
